FAERS Safety Report 8263850-X (Version None)
Quarter: 2012Q2

REPORT INFORMATION
  Report Type: 
  Country: None (occurrence: None)
  Receive Date: 20120405
  Receipt Date: 20120330
  Transmission Date: 20120825
  Serious: Yes (Other)
  Sender: FDA-Public Use
  Company Number: GB-MERCK-1104GBR00027

PATIENT
  Age: 75 Year
  Sex: Male

DRUGS (8)
  1. WARFARIN [Concomitant]
     Indication: ATRIAL FIBRILLATION
     Route: 065
  2. ZETIA [Suspect]
     Indication: CEREBROVASCULAR ACCIDENT
     Route: 048
     Dates: start: 19960101
  3. PROPRANOLOL HYDROCHLORIDE [Concomitant]
     Indication: EAR DISORDER
     Route: 065
  4. VALSARTAN [Concomitant]
     Indication: CEREBROVASCULAR ACCIDENT
     Route: 065
  5. WARFARIN [Concomitant]
     Indication: CEREBROVASCULAR ACCIDENT
     Route: 065
  6. FINASTERIDE [Concomitant]
     Indication: SURGERY
     Route: 048
  7. FUROSEMIDE [Concomitant]
     Indication: LEFT VENTRICULAR HYPERTROPHY
     Route: 065
  8. SPIRONOLACTONE [Concomitant]
     Indication: LEFT VENTRICULAR HYPERTROPHY
     Route: 065

REACTIONS (7)
  - CEREBROVASCULAR ACCIDENT [None]
  - DIVERTICULUM INTESTINAL [None]
  - DRUG INEFFECTIVE [None]
  - MYOCARDIAL ISCHAEMIA [None]
  - DEPRESSION [None]
  - UMBILICAL HERNIA [None]
  - HAEMATURIA [None]
